FAERS Safety Report 7128521-1 (Version None)
Quarter: 2010Q4

REPORT INFORMATION
  Report Type: 
  Country: None (occurrence: None)
  Receive Date: 20101115
  Receipt Date: 20101029
  Transmission Date: 20110411
  Serious: Yes (Hospitalization)
  Sender: FDA-Public Use
  Company Number: 1000017208

PATIENT
  Age: 57 Year
  Sex: Female

DRUGS (3)
  1. ESCITALOPRAM [Suspect]
     Dosage: 10 MG (10 MG, 1 IN 1 D), ORAL
     Route: 048
  2. ESCITALOPRAM [Suspect]
     Dosage: (280 MG, ONCE), ORAL
     Route: 048
     Dates: start: 20101014, end: 20101014
  3. ANTIHYPERTENSIVES NOS (ANTIHYPERTENSIVES NOS) (ANTIHYPERTENSIVES NOS) [Concomitant]

REACTIONS (3)
  - ANGLE CLOSURE GLAUCOMA [None]
  - INTENTIONAL OVERDOSE [None]
  - SOMNOLENCE [None]
